FAERS Safety Report 18995325 (Version 1)
Quarter: 2021Q1

REPORT INFORMATION
  Report Type: Spontaneous
  Country: JP (occurrence: US)
  Receive Date: 20210310
  Receipt Date: 20210310
  Transmission Date: 20210420
  Serious: Yes (Other)
  Sender: FDA-Public Use
  Company Number: JP-JNJFOC-20210315756

PATIENT
  Age: 34 Year
  Sex: Female

DRUGS (1)
  1. RIVAROXABAN [Suspect]
     Active Substance: RIVAROXABAN
     Indication: DEEP VEIN THROMBOSIS
     Dosage: 15 MG, QD
     Route: 048

REACTIONS (4)
  - Renal vascular thrombosis [Unknown]
  - Drug ineffective [Unknown]
  - Renal injury [Unknown]
  - Cerebral infarction [Unknown]
